FAERS Safety Report 14405547 (Version 7)
Quarter: 2025Q4

REPORT INFORMATION
  Report Type: Spontaneous
  Country: US (occurrence: US)
  Receive Date: 20180118
  Receipt Date: 20251208
  Transmission Date: 20260117
  Serious: Yes (Other)
  Sender: MYLAN
  Company Number: US-PFIZER INC-2018022350

PATIENT
  Sex: Male
  Weight: 77.11 kg

DRUGS (10)
  1. LYRICA [Suspect]
     Active Substance: PREGABALIN
     Indication: Peripheral nerve injury
     Dosage: 100 MILLIGRAM, TID (ONE CAPSULE THREE TIMES A DAY)
     Dates: start: 2011, end: 2012
  2. LYRICA [Suspect]
     Active Substance: PREGABALIN
     Indication: Diabetic neuropathy
  3. LYRICA [Suspect]
     Active Substance: PREGABALIN
     Indication: Pain
     Dosage: UNK
  4. LYRICA [Suspect]
     Active Substance: PREGABALIN
     Indication: Mental disorder
  5. METFORMIN [Concomitant]
     Active Substance: METFORMIN HYDROCHLORIDE
     Indication: Diabetes mellitus
     Dosage: 500 MG, 2X/DAY
     Dates: start: 1995
  6. CLONIDINE [Concomitant]
     Active Substance: CLONIDINE
     Indication: Hypertension
     Dosage: 1 MILLIGRAM
  7. GLIPIZIDE [Concomitant]
     Active Substance: GLIPIZIDE
     Indication: Diabetes mellitus
     Dosage: 10 MG, 2X/DAY
  8. CLOPIDOGREL BISULFATE [Concomitant]
     Active Substance: CLOPIDOGREL BISULFATE
     Indication: Cardiac failure congestive
     Dosage: 75 MG, 1X/DAY
  9. SACUBITRIL [Concomitant]
     Active Substance: SACUBITRIL
     Indication: Hypertension
     Dosage: 103 MILLIGRAM, BID
  10. SACUBITRIL [Concomitant]
     Active Substance: SACUBITRIL
     Indication: Cardiac failure congestive

REACTIONS (5)
  - Cardiac failure congestive [Not Recovered/Not Resolved]
  - Erectile dysfunction [Recovering/Resolving]
  - Sperm concentration decreased [Unknown]
  - Blood testosterone decreased [Unknown]
  - Sexual dysfunction [Not Recovered/Not Resolved]

NARRATIVE: CASE EVENT DATE: 20160101
